FAERS Safety Report 25549576 (Version 1)
Quarter: 2025Q3

REPORT INFORMATION
  Report Type: Spontaneous
  Country: EG (occurrence: EG)
  Receive Date: 20250714
  Receipt Date: 20250714
  Transmission Date: 20251021
  Serious: Yes (Other)
  Sender: BIOCON
  Company Number: EG-BIOCON BIOLOGICS LIMITED-BBL2025003600

PATIENT

DRUGS (3)
  1. HULIO [Suspect]
     Active Substance: ADALIMUMAB-FKJP
     Indication: Behcet^s syndrome
     Dosage: 2 DOSAGE FORMS, QMONTH (2 PEN OR SYRINGE EVERY MONTH)
     Route: 058
     Dates: start: 20250601
  2. HULIO [Suspect]
     Active Substance: ADALIMUMAB-FKJP
  3. CORTICOSTEROID NOS [Concomitant]
     Active Substance: CORTICOSTEROID NOS
     Indication: Product used for unknown indication
     Route: 065

REACTIONS (4)
  - Dysstasia [Not Recovered/Not Resolved]
  - Chills [Not Recovered/Not Resolved]
  - Product dose omission issue [Unknown]
  - Off label use [Unknown]

NARRATIVE: CASE EVENT DATE: 20250701
